FAERS Safety Report 24308071 (Version 1)
Quarter: 2024Q3

REPORT INFORMATION
  Report Type: Other
  Country: US (occurrence: US)
  Receive Date: 20240911
  Receipt Date: 20240911
  Transmission Date: 20241016
  Serious: No
  Sender: SIGMA TAU
  Company Number: US-LEADIANT GMBH-2023STPI000435

PATIENT
  Sex: Male
  Weight: 114 kg

DRUGS (3)
  1. MATULANE [Suspect]
     Active Substance: PROCARBAZINE HYDROCHLORIDE
     Indication: Brain neoplasm malignant
     Dosage: 50 MILLIGRAMS, 2 CAPSULES (100 MG TOTAL) DAILY ON DAY 8-21
     Route: 048
     Dates: start: 20230930
  2. LOMUSTINE [Suspect]
     Active Substance: LOMUSTINE
     Indication: Brain neoplasm malignant
  3. ATORVASTATIN CALCIUM [Concomitant]
     Active Substance: ATORVASTATIN CALCIUM
     Indication: Hypertension

REACTIONS (3)
  - Platelet count decreased [Recovered/Resolved]
  - White blood cell count decreased [Unknown]
  - Neuropathy peripheral [Recovered/Resolved]
